FAERS Safety Report 23472792 (Version 2)
Quarter: 2024Q1

REPORT INFORMATION
  Report Type: Spontaneous
  Country: US (occurrence: US)
  Receive Date: 20240202
  Receipt Date: 20240210
  Transmission Date: 20240409
  Serious: No
  Sender: FDA-Public Use
  Company Number: US-SANOFI-01925764

PATIENT
  Age: 45 Year
  Sex: Female

DRUGS (2)
  1. DUPIXENT [Suspect]
     Active Substance: DUPILUMAB
     Indication: Asthma
     Dosage: 400 MG, 1X
     Route: 058
     Dates: start: 20240106, end: 20240106
  2. DUPIXENT [Suspect]
     Active Substance: DUPILUMAB
     Dosage: 200MG, QOW
     Route: 058
     Dates: start: 202401

REACTIONS (1)
  - Injection site pain [Unknown]

NARRATIVE: CASE EVENT DATE: 20240120
